FAERS Safety Report 11951141 (Version 1)
Quarter: 2016Q1

REPORT INFORMATION
  Report Type: Spontaneous
  Country: DE (occurrence: DE)
  Receive Date: 20160126
  Receipt Date: 20160126
  Transmission Date: 20160526
  Serious: Yes (Hospitalization, Congenital Anomaly, Other)
  Sender: FDA-Public Use
  Company Number: GXKR2016DE000633

PATIENT

DRUGS (8)
  1. ASPIRIN. [Concomitant]
     Active Substance: ASPIRIN
     Indication: COAGULOPATHY
     Dosage: 100 [MG/D ], 5.-12 GW
     Route: 064
  2. PREDNISOLON [Concomitant]
     Active Substance: PREDNISOLONE
     Indication: COAGULOPATHY
     Dosage: 10 [MG/D ], 5.-12. GW
     Route: 064
  3. FEMIBION                           /01597501/ [Concomitant]
     Active Substance: CALCIUM PHOSPHATE, DIBASIC, ANHYDROUS\FERROUS SUCCINATE\MAGNESIUM HYDROXIDE
     Indication: PROPHYLAXIS OF NEURAL TUBE DEFECT
     Dosage: 0.8 [MG/D ], 0.-32.5 GW
     Route: 064
     Dates: start: 20141023, end: 20150609
  4. CLEXANE [Concomitant]
     Active Substance: ENOXAPARIN SODIUM
     Indication: COAGULOPATHY
     Dosage: 20 [MG/D ], 6.-32.5 GW
     Route: 064
  5. DIAZEPAM. [Concomitant]
     Active Substance: DIAZEPAM
     Indication: DEPRESSION
     Dosage: 2ND  AND 3RD TRIMESTER
     Route: 064
  6. VENLAFAXINE [Suspect]
     Active Substance: VENLAFAXINE HYDROCHLORIDE
     Indication: DEPRESSION
     Dosage: 75 [MG/D ], 0.-32.5 GW
     Route: 064
     Dates: start: 20141023, end: 20150609
  7. EUTHYROX [Concomitant]
     Active Substance: LEVOTHYROXINE SODIUM
     Indication: HYPOTHYROIDISM
     Dosage: 50 [?G/D ], 0.-32.5 GW
     Route: 064
     Dates: start: 20141023, end: 20150609
  8. TRENTAL [Suspect]
     Active Substance: PENTOXIFYLLINE
     Indication: COAGULOPATHY
     Dosage: 800 [MG/D ], 5.-12. GW
     Route: 064

REACTIONS (4)
  - Atrial septal defect [Not Recovered/Not Resolved]
  - Bradycardia neonatal [Recovered/Resolved]
  - Infantile apnoea [Recovered/Resolved]
  - Respiratory disorder neonatal [Recovered/Resolved]

NARRATIVE: CASE EVENT DATE: 20150609
